FAERS Safety Report 8481925-7 (Version None)
Quarter: 2012Q2

REPORT INFORMATION
  Report Type: 
  Country: None (occurrence: None)
  Receive Date: 20120402
  Receipt Date: 20111014
  Transmission Date: 20120825
  Serious: Yes (Other)
  Sender: FDA-Public Use
  Company Number: A-US2011-55612

PATIENT
  Age: 11 Year
  Sex: Male

DRUGS (4)
  1. TRACLEER [Suspect]
     Indication: PULMONARY ARTERIAL HYPERTENSION
     Dosage: ORAL
     Route: 048
  2. REMODULIN [Suspect]
     Indication: PULMONARY ARTERIAL HYPERTENSION
     Dosage: 0.079 UG/KG, PER MIN
     Dates: start: 20090505
  3. REVATIO [Concomitant]
  4. ASPIRIN [Concomitant]

REACTIONS (2)
  - SYNCOPE [None]
  - ATRIAL FLUTTER [None]
